FAERS Safety Report 5551224-1 (Version None)
Quarter: 2007Q4

REPORT INFORMATION
  Report Type: 
  Country: None (occurrence: None)
  Receive Date: 20071128
  Receipt Date: 20070830
  Transmission Date: 20080405
  Serious: Yes (Other)
  Sender: FDA-Public Use
  Company Number: 2007073351

PATIENT
  Sex: Female

DRUGS (1)
  1. LIPITOR [Suspect]
     Dates: start: 20000101

REACTIONS (6)
  - BLOOD CHOLESTEROL INCREASED [None]
  - FATIGUE [None]
  - HYPERSOMNIA [None]
  - MEMORY IMPAIRMENT [None]
  - MUSCLE DISORDER [None]
  - VITAMIN D DEFICIENCY [None]
